FAERS Safety Report 7244451-9 (Version None)
Quarter: 2011Q1

REPORT INFORMATION
  Report Type: 
  Country: None (occurrence: None)
  Receive Date: 20110125
  Receipt Date: 20110118
  Transmission Date: 20110831
  Serious: Yes (Other)
  Sender: FDA-Public Use
  Company Number: US-PFIZER INC-2011013197

PATIENT
  Sex: Male

DRUGS (2)
  1. LIPITOR [Suspect]
     Dosage: 10 MG, UNK
  2. LIPITOR [Suspect]
     Indication: BLOOD CHOLESTEROL
     Dosage: 20 MG, UNK

REACTIONS (4)
  - OEDEMA PERIPHERAL [None]
  - SEMEN DISCOLOURATION [None]
  - PAIN IN EXTREMITY [None]
  - BLOOD CHOLESTEROL INCREASED [None]
